FAERS Safety Report 25315892 (Version 2)
Quarter: 2025Q2

REPORT INFORMATION
  Report Type: Report from Study
  Country: US (occurrence: US)
  Receive Date: 20250515
  Receipt Date: 20250515
  Transmission Date: 20250717
  Serious: Yes (Other)
  Sender: UCB
  Company Number: US-UCBSA-2025027255

PATIENT
  Age: 9 Year
  Sex: Male
  Weight: 29.5 kg

DRUGS (1)
  1. FINTEPLA [Suspect]
     Active Substance: FENFLURAMINE
     Indication: Seizure
     Dates: start: 20210127

REACTIONS (1)
  - Aortic dilatation [Not Recovered/Not Resolved]

NARRATIVE: CASE EVENT DATE: 20250503
